FAERS Safety Report 5989726-6 (Version None)
Quarter: 2008Q4

REPORT INFORMATION
  Report Type: 
  Country: None (occurrence: None)
  Receive Date: 20081208
  Receipt Date: 20081121
  Transmission Date: 20090506
  Serious: Yes (Hospitalization)
  Sender: FDA-Public Use
  Company Number: 2008BI032394

PATIENT
  Age: 40 Year
  Sex: Female

DRUGS (6)
  1. ZEVALIN [Suspect]
     Indication: B-CELL LYMPHOMA
     Dosage: 22.4 MCI; 1X; IV
     Route: 042
     Dates: start: 20080911, end: 20080911
  2. RITUXIMAB [Concomitant]
  3. CARMUSTINE [Concomitant]
  4. ETOPOSIDE [Concomitant]
  5. CYTARABINE [Concomitant]
  6. MELPHALAN [Concomitant]

REACTIONS (3)
  - GENITAL HERPES [None]
  - HERPES VIRUS INFECTION [None]
  - PYREXIA [None]
